FAERS Safety Report 5189019-3 (Version None)
Quarter: 2006Q4

REPORT INFORMATION
  Report Type: 
  Country: None (occurrence: None)
  Receive Date: 20061215
  Receipt Date: 20061207
  Transmission Date: 20070319
  Serious: Yes (Other)
  Sender: FDA-Public Use
  Company Number: 2006151242

PATIENT
  Age: 55 Year
  Sex: Male
  Weight: 90.7194 kg

DRUGS (2)
  1. CELEBREX [Suspect]
     Indication: ARTHRALGIA
     Dosage: 200 MG (200 MG, 1 IN 1 D), ORAL
     Route: 048
     Dates: start: 20040101, end: 20061202
  2. MULTI-VITAMINS [Concomitant]

REACTIONS (3)
  - BLEPHAROSPASM [None]
  - BLOOD CHOLESTEROL INCREASED [None]
  - TRANSIENT ISCHAEMIC ATTACK [None]
